FAERS Safety Report 9672008 (Version 3)
Quarter: 2014Q2

REPORT INFORMATION
  Report Type: Spontaneous
  Country: US (occurrence: US)
  Receive Date: 20131106
  Receipt Date: 20140421
  Transmission Date: 20141212
  Serious: Yes (Hospitalization)
  Sender: FDA-Public Use
  Company Number: US-GLAXOSMITHKLINE-A1048368A

PATIENT
  Age: 52 Year
  Sex: Female

DRUGS (7)
  1. ADVAIR HFA [Suspect]
     Indication: ASTHMA
     Dosage: 1PUFF TWICE PER DAY
     Route: 055
     Dates: start: 2001
  2. BECONASE AQ [Suspect]
     Indication: RESPIRATORY DISORDER
     Dosage: 4SPR TWICE PER DAY
     Route: 045
     Dates: start: 20130821
  3. VENTOLIN [Suspect]
     Indication: ASTHMA
     Dosage: 2PUFF AS REQUIRED
     Route: 055
     Dates: start: 1992
  4. FLONASE [Suspect]
     Indication: PRODUCT USED FOR UNKNOWN INDICATION
     Route: 045
  5. ALBUTEROL [Concomitant]
  6. ATROVENT [Concomitant]
  7. ATROVENT [Concomitant]
     Route: 045

REACTIONS (9)
  - Mental impairment [Unknown]
  - Malaise [Unknown]
  - Asthma [Unknown]
  - Cough [Recovering/Resolving]
  - Fatigue [Recovering/Resolving]
  - Sneezing [Recovering/Resolving]
  - Nasal congestion [Recovering/Resolving]
  - Epistaxis [Recovering/Resolving]
  - Drug ineffective [Unknown]
